FAERS Safety Report 4462957-2 (Version None)
Quarter: 2004Q3

REPORT INFORMATION
  Report Type: 
  Country: None (occurrence: None)
  Receive Date: 20040927
  Receipt Date: 20040913
  Transmission Date: 20050211
  Serious: Yes (Other)
  Sender: FDA-Public Use
  Company Number: 2004063795

PATIENT
  Age: 54 Year
  Sex: Male
  Weight: 90 kg

DRUGS (1)
  1. ATORVASTATIN CALCIUM [Suspect]
     Indication: BLOOD CHOLESTEROL
     Dosage: 10 MG, 1 IN 1 D
     Dates: start: 20040701, end: 20040101

REACTIONS (2)
  - JOINT HYPEREXTENSION [None]
  - MUSCLE RUPTURE [None]
